FAERS Safety Report 8551853 (Version 2)
Quarter: 2013Q3

REPORT INFORMATION
  Report Type: Spontaneous
  Country: US (occurrence: US)
  Receive Date: 20120508
  Receipt Date: 20130701
  Transmission Date: 20140515
  Serious: Yes (Life-Threatening, Hospitalization)
  Sender: FDA-Public Use
  Company Number: US-BAYER-2012-043491

PATIENT
  Age: 34 Year
  Sex: Female
  Weight: 99 kg

DRUGS (7)
  1. YAZ [Suspect]
     Indication: MENSTRUAL CYCLE MANAGEMENT
  2. YASMIN [Suspect]
  3. OCELLA [Suspect]
  4. BEYAZ [Suspect]
  5. ACETAMINOPHEN W/HYDROCODONE [Concomitant]
  6. LEXAPRO [Concomitant]
  7. ALBUTEROL [Concomitant]

REACTIONS (7)
  - Pulmonary embolism [Recovered/Resolved]
  - Injury [Recovered/Resolved]
  - General physical health deterioration [Recovered/Resolved]
  - Anxiety [None]
  - Anhedonia [None]
  - Pain [Recovered/Resolved]
  - Emotional distress [None]
